FAERS Safety Report 20584161 (Version 1)
Quarter: 2022Q1

REPORT INFORMATION
  Report Type: Spontaneous
  Country: US (occurrence: None)
  Receive Date: 20220311
  Receipt Date: 20220311
  Transmission Date: 20220423
  Serious: Yes (Death)
  Sender: FDA-Public Use
  Company Number: None

PATIENT
  Sex: Male

DRUGS (2)
  1. PROLIA [Suspect]
     Active Substance: DENOSUMAB
     Indication: Senile osteoporosis
     Dosage: INJECG 1 SYRINGE UNDER THE SKIN (SUBCUTANEOUS INJECTION) EVERY 6 MONTH
     Route: 058
     Dates: start: 20200819
  2. PROLIA [Suspect]
     Active Substance: DENOSUMAB
     Dosage: OTHER QUANTITY : 1 SYRINGE;?OTHER FREQUENCY : EVERY 6 MONTHS;?
     Route: 058

REACTIONS (1)
  - Death [None]
